FAERS Safety Report 7795487-0 (Version None)
Quarter: 2011Q4

REPORT INFORMATION
  Report Type: 
  Country: None (occurrence: None)
  Receive Date: 20111004
  Receipt Date: 20110923
  Transmission Date: 20120403
  Serious: Yes (Hospitalization)
  Sender: FDA-Public Use
  Company Number: FR-MERCK-1109USA03336

PATIENT
  Age: 25 Year
  Sex: Male

DRUGS (17)
  1. PENTACARINAT [Concomitant]
     Route: 055
     Dates: start: 20110708, end: 20110708
  2. HYDREA [Concomitant]
     Route: 065
  3. EMEND [Suspect]
     Route: 048
     Dates: start: 20110708, end: 20110708
  4. BACTRIM [Concomitant]
     Dosage: 2 CAPSULES ON MONDAY, ON WEDNESDAY AND ON FRIDAY.
     Route: 065
  5. FASTURTEC [Concomitant]
     Route: 065
  6. EMEND [Suspect]
     Route: 048
     Dates: start: 20110709, end: 20110713
  7. VALACYCLOVIR HYDROCHLORIDE [Suspect]
     Indication: ANTIVIRAL PROPHYLAXIS
     Route: 048
  8. TIENAM [Concomitant]
     Route: 042
     Dates: start: 20110713
  9. AMIKACIN [Suspect]
     Route: 042
     Dates: start: 20110711, end: 20110712
  10. VFEND [Suspect]
     Indication: ANTIFUNGAL PROPHYLAXIS
     Route: 048
  11. ZOFRAN [Suspect]
     Route: 042
     Dates: start: 20110708, end: 20110713
  12. EVOLTRA [Suspect]
     Route: 042
     Dates: start: 20110708, end: 20110712
  13. TARGOCID [Concomitant]
     Route: 042
     Dates: start: 20110713
  14. TRAMADOL HCL [Suspect]
     Route: 048
     Dates: start: 20110709, end: 20110712
  15. PIPERACILLIN AND TAZOBACTAM [Suspect]
     Route: 042
     Dates: start: 20110711, end: 20110712
  16. CYTARABINE [Suspect]
     Indication: ACUTE MYELOID LEUKAEMIA
     Route: 042
     Dates: start: 20110708, end: 20110712
  17. CIPROFLOXACIN [Suspect]
     Route: 042
     Dates: start: 20110713, end: 20110715

REACTIONS (1)
  - PHOTOSENSITIVITY REACTION [None]
